FAERS Safety Report 10178312 (Version 1)
Quarter: 2014Q2

REPORT INFORMATION
  Report Type: Spontaneous
  Country: FR (occurrence: FR)
  Receive Date: 20140519
  Receipt Date: 20140519
  Transmission Date: 20141212
  Serious: Yes (Hospitalization, Other)
  Sender: FDA-Public Use
  Company Number: FR-AMGEN-FRASP2014035686

PATIENT
  Age: 65 Year
  Sex: Male

DRUGS (7)
  1. ENBREL [Suspect]
     Indication: ANKYLOSING SPONDYLITIS
     Dosage: UNK
     Route: 065
     Dates: start: 201201, end: 201312
  2. ATACAND [Concomitant]
     Dosage: UNK
  3. TAHOR [Concomitant]
     Dosage: UNK
  4. DOLIPRANE [Concomitant]
     Dosage: UNK
  5. TADENAN [Concomitant]
     Dosage: UNK
  6. INEXIUM                            /01479302/ [Concomitant]
     Dosage: UNK
  7. PLAVIX [Concomitant]
     Dosage: UNK

REACTIONS (1)
  - Nephrotic syndrome [Recovered/Resolved]
